FAERS Safety Report 5679343-X (Version None)
Quarter: 2008Q1

REPORT INFORMATION
  Report Type: 
  Country: None (occurrence: None)
  Receive Date: 20080325
  Receipt Date: 20080314
  Transmission Date: 20080703
  Serious: Yes (Disabling)
  Sender: FDA-Public Use
  Company Number: BR-ROCHE-553872

PATIENT
  Age: 16 Year
  Sex: Male

DRUGS (1)
  1. ROACUTAN [Suspect]
     Indication: ACNE
     Dosage: ACCUMULATED DOSE REPORTED AS 126.31 MG/KG
     Route: 048
     Dates: start: 20060701, end: 20070226

REACTIONS (3)
  - DIABETES INSIPIDUS [None]
  - HEADACHE [None]
  - PINEALOMA [None]
